FAERS Safety Report 6709042-4 (Version None)
Quarter: 2010Q2

REPORT INFORMATION
  Report Type: 
  Country: None (occurrence: None)
  Receive Date: 20100504
  Receipt Date: 20100422
  Transmission Date: 20101027
  Serious: Yes (Other)
  Sender: FDA-Public Use
  Company Number: US-BAYER-201020513NA

PATIENT
  Age: 31 Year
  Sex: Female

DRUGS (3)
  1. BETASERON [Suspect]
     Indication: MULTIPLE SCLEROSIS
     Dosage: TOTAL DAILY DOSE: 8 MIU
     Route: 058
     Dates: start: 20100303
  2. SOLU-MEDROL [Suspect]
     Indication: MULTIPLE SCLEROSIS RELAPSE
     Dosage: COMPLETED IV TREATMENT FOR A TOTAL OF 5 DAYS
     Route: 042
  3. PREDNISONE [Suspect]
     Indication: MULTIPLE SCLEROSIS RELAPSE
     Route: 048

REACTIONS (8)
  - ACNE [None]
  - ASTHENIA [None]
  - DIPLOPIA [None]
  - DIZZINESS [None]
  - FATIGUE [None]
  - INJECTION SITE REACTION [None]
  - MULTIPLE SCLEROSIS RELAPSE [None]
  - THROAT TIGHTNESS [None]
